FAERS Safety Report 7280403-0 (Version None)
Quarter: 2011Q1

REPORT INFORMATION
  Report Type: 
  Country: None (occurrence: None)
  Receive Date: 20110208
  Receipt Date: 20110127
  Transmission Date: 20110831
  Serious: Yes (Hospitalization, Other)
  Sender: FDA-Public Use
  Company Number: US-ELI_LILLY_AND_COMPANY-US200901001583

PATIENT
  Sex: Female
  Weight: 94.331 kg

DRUGS (30)
  1. SPIRONOLACTONE [Concomitant]
     Indication: HYPERTENSION
     Dosage: 25 MG, DAILY (1/D)
     Route: 048
     Dates: start: 20061012
  2. LEVOXYL [Concomitant]
     Indication: HYPOTHYROIDISM
     Dosage: 370 UG, DAILY (1/D)
     Route: 048
     Dates: start: 20080610
  3. GEMFIBROZIL [Concomitant]
     Indication: HYPERTRIGLYCERIDAEMIA
     Dosage: 600 MG, 2/D
     Route: 048
     Dates: start: 20061201
  4. PLAVIX [Concomitant]
     Indication: CARDIOVASCULAR EVENT PROPHYLAXIS
     Dosage: 75 MG, DAILY (1/D)
     Route: 048
     Dates: start: 20080226
  5. BYETTA [Suspect]
     Indication: TYPE 2 DIABETES MELLITUS
     Dosage: 5 UG, 2/D
     Route: 058
     Dates: start: 20070501, end: 20070626
  6. BYETTA [Suspect]
     Dosage: UNK, UNKNOWN
     Dates: start: 20071208, end: 20081219
  7. TYLENOL                                 /SCH/ [Concomitant]
     Dosage: UNK, AS NEEDED
  8. VITAMIN E [Concomitant]
     Dosage: UNK, DAILY (1/D)
  9. CALCIUM CITRATE WITH VITAMIN D [Concomitant]
     Dosage: UNK, DAILY (1/D)
  10. BYETTA [Suspect]
     Dosage: 10 UG, 2/D
     Route: 058
     Dates: start: 20070627, end: 20081218
  11. CLONIDINE [Concomitant]
     Indication: HYPERTENSION
     Dosage: 0.1 MG, DAILY (1/D)
     Route: 048
  12. ASPIRIN [Concomitant]
     Indication: THROMBOSIS PROPHYLAXIS
     Dosage: 81 MG, DAILY (1/D)
     Route: 048
  13. VITAMIN B [Concomitant]
     Dosage: UNK, DAILY (1/D)
  14. FOLIC ACID [Concomitant]
     Dosage: 400 UG, DAILY (1/D)
  15. METFORMIN HCL [Concomitant]
     Indication: TYPE 2 DIABETES MELLITUS
     Dosage: 1000 MG, 2/D
     Route: 048
     Dates: start: 20061211
  16. POTASSIUM CHLORIDE [Concomitant]
     Dosage: 20 MEQ, 2/D
     Route: 048
  17. SELENIUM [Concomitant]
     Indication: PROPHYLAXIS
     Dosage: 200 MG, DAILY (1/D)
     Route: 048
  18. EPINEPHRINE [Concomitant]
     Dosage: UNK, AS NEEDED
  19. LANTUS [Concomitant]
     Indication: TYPE 2 DIABETES MELLITUS
     Dosage: 30 U, EACH EVENING
     Dates: end: 20070501
  20. TRIAMTERENE AND HYDROCHLOROTHIAZID [Concomitant]
     Indication: HYPERTENSION
     Dosage: 1 D/F, DAILY (1/D)
     Route: 048
     Dates: start: 20050823
  21. MULTIPLE VITAMINS [Concomitant]
     Dosage: UNK, DAILY (1/D)
  22. ESTER C                            /00968001/ [Concomitant]
     Dosage: 500 MG, DAILY (1/D)
  23. LEVOXYL [Concomitant]
     Dosage: 137 UG, DAILY (1/D)
  24. LISINOPRIL [Concomitant]
     Indication: HYPERTENSION
     Dosage: 10 MG, DAILY (1/D)
     Route: 048
     Dates: start: 20090205
  25. ATENOLOL [Concomitant]
     Indication: HYPERTENSION
     Dosage: 25 MG, DAILY (1/D)
     Route: 048
     Dates: start: 20090121
  26. FISH OIL [Concomitant]
     Indication: PROPHYLAXIS
     Dosage: 1000 MG, DAILY (1/D)
     Route: 048
  27. CRESTOR [Concomitant]
     Dosage: 10 MG, DAILY (1/D)
     Dates: start: 20060101
  28. ZINC [Concomitant]
     Dosage: UNK, DAILY (1/D)
  29. LANTUS [Concomitant]
     Dates: start: 20081201
  30. MIRALAX [Concomitant]
     Dosage: UNK, AS NEEDED

REACTIONS (4)
  - OFF LABEL USE [None]
  - WEIGHT DECREASED [None]
  - PANCREATITIS ACUTE [None]
  - ALOPECIA [None]
